FAERS Safety Report 11089202 (Version 1)
Quarter: 2015Q2

REPORT INFORMATION
  Report Type: Spontaneous
  Country: US (occurrence: US)
  Receive Date: 20150505
  Receipt Date: 20150505
  Transmission Date: 20150821
  Serious: Yes (Hospitalization, Other)
  Sender: FDA-Public Use
  Company Number: US-BEH-2015050651

PATIENT
  Sex: Male
  Weight: 21.8 kg

DRUGS (24)
  1. LIDOCAINE/PRILOCAINE [Concomitant]
  2. NEXIUM [Concomitant]
     Active Substance: ESOMEPRAZOLE MAGNESIUM
  3. ACYCLOVIR. [Concomitant]
     Active Substance: ACYCLOVIR
  4. EPIPEN [Concomitant]
     Active Substance: EPINEPHRINE
  5. ONDANSETRON HCL [Concomitant]
     Active Substance: ONDANSETRON HYDROCHLORIDE
  6. CETIRIZINE HCL [Concomitant]
     Active Substance: CETIRIZINE HYDROCHLORIDE
  7. ALBUTEROL SULFATE HFA [Concomitant]
     Dosage: 2 PUFFS
  8. VIMPAT [Concomitant]
     Active Substance: LACOSAMIDE
  9. DIPHENHYDRAMINE [Concomitant]
     Active Substance: DIPHENHYDRAMINE
  10. BANZEL [Concomitant]
     Active Substance: RUFINAMIDE
  11. FLINSTONES COMPLETE [Concomitant]
  12. CHLORAL HYDRATE [Concomitant]
     Active Substance: CHLORAL HYDRATE
  13. HIZENTRA [Suspect]
     Active Substance: HUMAN IMMUNOGLOBULIN G
     Indication: ENCEPHALOPATHY
     Route: 058
  14. BENADRYL ALLERGY [Concomitant]
     Active Substance: DIPHENHYDRAMINE HYDROCHLORIDE
     Dosage: 1 TEASPOON
  15. ACETAMINOPHEN. [Concomitant]
     Active Substance: ACETAMINOPHEN
  16. CELONTIN [Concomitant]
     Active Substance: METHSUXIMIDE
  17. DIASTAT ACUDIAL [Concomitant]
     Active Substance: DIAZEPAM
  18. HIZENTRA [Suspect]
     Active Substance: HUMAN IMMUNOGLOBULIN G
     Indication: SELECTIVE IGM IMMUNODEFICIENCY
     Route: 058
  19. DIVALPROEX SODIUM. [Concomitant]
     Active Substance: DIVALPROEX SODIUM
  20. PULMICORT TURBUHALER [Concomitant]
     Active Substance: BUDESONIDE
  21. LMX [Concomitant]
     Active Substance: LIDOCAINE
  22. ZONISAMIDE. [Concomitant]
     Active Substance: ZONISAMIDE
  23. ZANAFLEX [Concomitant]
     Active Substance: TIZANIDINE HYDROCHLORIDE
  24. TRANXENE-T [Concomitant]

REACTIONS (2)
  - Malaise [Unknown]
  - Seizure [Unknown]
